FAERS Safety Report 9872557 (Version 3)
Quarter: 2015Q1

REPORT INFORMATION
  Report Type: Other
  Country: US (occurrence: US)
  Receive Date: 20140206
  Receipt Date: 20150203
  Transmission Date: 20150721
  Serious: No
  Sender: FDA-Public Use
  Company Number: US-ACORDA-ACO_100159_2013

PATIENT
  Sex: Female

DRUGS (1)
  1. AMPYRA [Suspect]
     Active Substance: DALFAMPRIDINE
     Indication: MULTIPLE SCLEROSIS
     Dosage: 10 MG, BID
     Route: 048
     Dates: start: 20130510, end: 20131022

REACTIONS (4)
  - Gait disturbance [Recovering/Resolving]
  - Dry mouth [Recovering/Resolving]
  - Balance disorder [Recovering/Resolving]
  - Nocturia [Recovering/Resolving]
